FAERS Safety Report 12771528 (Version 1)
Quarter: 2016Q3

REPORT INFORMATION
  Report Type: Spontaneous
  Country: US (occurrence: US)
  Receive Date: 20160922
  Receipt Date: 20160922
  Transmission Date: 20161109
  Serious: Yes (Other)
  Sender: FDA-Public Use
  Company Number: None

PATIENT
  Age: 79 Year
  Sex: Female
  Weight: 81.65 kg

DRUGS (9)
  1. AVASTIN [Suspect]
     Active Substance: BEVACIZUMAB
     Indication: NEOVASCULAR AGE-RELATED MACULAR DEGENERATION
     Dosage: EVERY 12 WKS IN EACH EYE INTRAVITREAL INJECTION
     Dates: start: 2013, end: 20160202
  2. ALEVE [Concomitant]
     Active Substance: NAPROXEN SODIUM
  3. EYLEA [Concomitant]
     Active Substance: AFLIBERCEPT
  4. ANTIHISTAMINE [Concomitant]
     Active Substance: UNSPECIFIED INGREDIENT
  5. VITAMIN D [Concomitant]
     Active Substance: CHOLECALCIFEROL
  6. BD INSULIN SYRINGE USED FOR STORAGE SHIPPMENT AND INJECTION OF THE AVASTIN INJECTED INTO MY EYE [Suspect]
     Active Substance: DEVICE
  7. HYDROCHLOROTHIAZIDE. [Concomitant]
     Active Substance: HYDROCHLOROTHIAZIDE
  8. LOSARTAN POTASSIUM. [Concomitant]
     Active Substance: LOSARTAN POTASSIUM
  9. ARIDS 2(EYE VIT) [Concomitant]

REACTIONS (3)
  - Ocular discomfort [None]
  - Visual field defect [None]
  - Visual impairment [None]

NARRATIVE: CASE EVENT DATE: 20160202
